FAERS Safety Report 11328240 (Version 1)
Quarter: 2015Q3

REPORT INFORMATION
  Report Type: Spontaneous
  Country: US (occurrence: US)
  Receive Date: 20150731
  Receipt Date: 20150731
  Transmission Date: 20151125
  Serious: No
  Sender: FDA-Public Use
  Company Number: US-TAKEDA-2014TUS007586

PATIENT
  Sex: Male

DRUGS (1)
  1. COLCRYS [Suspect]
     Active Substance: COLCHICINE
     Indication: GOUT
     Dosage: 2 TABLETS EVERY HOUR UNTIL THE PRESCRIPTION IS COMPLETE
     Route: 048

REACTIONS (5)
  - Drug ineffective [Unknown]
  - Diarrhoea [Recovering/Resolving]
  - Prescribed overdose [Unknown]
  - Nausea [Recovering/Resolving]
  - Vomiting [Recovering/Resolving]
